FAERS Safety Report 13940174 (Version 1)
Quarter: 2017Q3

REPORT INFORMATION
  Report Type: Spontaneous
  Country: US (occurrence: None)
  Receive Date: 20170906
  Receipt Date: 20170906
  Transmission Date: 20171127
  Serious: Yes (Disabling)
  Sender: FDA-Public Use
  Company Number: None

PATIENT
  Age: 77 Year
  Sex: Female
  Weight: 61.23 kg

DRUGS (10)
  1. OMEEGA 3 [Concomitant]
  2. IRBESARTAN 150MG TABS SOLCO HEALTHCAR [Suspect]
     Active Substance: IRBESARTAN
     Indication: BLOOD PRESSURE MEASUREMENT
     Dosage: 1 PILL  1 DAILY MOUTH
     Route: 048
     Dates: start: 20170401, end: 20170801
  3. TELMISARTAN. [Concomitant]
     Active Substance: TELMISARTAN
  4. MULTIVITAMIN [Concomitant]
     Active Substance: VITAMINS
  5. ATORVASTATIN [Concomitant]
     Active Substance: ATORVASTATIN
  6. VITAMIN D3 [Concomitant]
     Active Substance: CHOLECALCIFEROL
  7. LEVOTHYROXINE. [Concomitant]
     Active Substance: LEVOTHYROXINE
  8. FISH OIL [Concomitant]
     Active Substance: FISH OIL
  9. ASPIRIN. [Concomitant]
     Active Substance: ASPIRIN
  10. CALCIUM [Concomitant]
     Active Substance: CALCIUM

REACTIONS (4)
  - Flatulence [None]
  - Vision blurred [None]
  - Blindness [None]
  - Diplopia [None]

NARRATIVE: CASE EVENT DATE: 20170801
